FAERS Safety Report 6699802-0 (Version None)
Quarter: 2010Q2

REPORT INFORMATION
  Report Type: 
  Country: None (occurrence: None)
  Receive Date: 20100428
  Receipt Date: 20091103
  Transmission Date: 20101027
  Serious: No
  Sender: FDA-Public Use
  Company Number: A0829333A

PATIENT
  Age: 71 Year
  Sex: Female
  Weight: 49 kg

DRUGS (5)
  1. LUXIQ [Suspect]
     Dosage: 0PCT PER DAY
     Route: 061
     Dates: start: 20090401, end: 20090901
  2. LUXIQ [Suspect]
     Dosage: 0PCT PER DAY
     Route: 061
     Dates: start: 20090901
  3. CLOBETASOL PROPIONATE [Suspect]
     Route: 061
     Dates: start: 20090401, end: 20090901
  4. DRUG USED IN DIABETES [Concomitant]
  5. ANTI-ASTHMATICS [Concomitant]
     Indication: ASTHMA

REACTIONS (2)
  - ALOPECIA [None]
  - INAPPROPRIATE SCHEDULE OF DRUG ADMINISTRATION [None]
